FAERS Safety Report 10239916 (Version 2)
Quarter: 2015Q2

REPORT INFORMATION
  Report Type: Report from Study
  Country: US (occurrence: US)
  Receive Date: 20140616
  Receipt Date: 20150520
  Transmission Date: 20150821
  Serious: Yes (Hospitalization, Other)
  Sender: FDA-Public Use
  Company Number: US-GILEAD-2014-0105262

PATIENT
  Age: 50 Year
  Sex: Female

DRUGS (6)
  1. AMBRISENTAN [Suspect]
     Active Substance: AMBRISENTAN
     Indication: PULMONARY HYPERTENSION
     Dosage: 10 MG, QD
     Route: 065
     Dates: start: 20120130
  2. ALLOPURINOL. [Concomitant]
     Active Substance: ALLOPURINOL
  3. FUROSEMIDE. [Concomitant]
     Active Substance: FUROSEMIDE
  4. AMBRISENTAN [Suspect]
     Active Substance: AMBRISENTAN
     Indication: PATENT DUCTUS ARTERIOSUS
  5. LEVOTHYROXINE [Concomitant]
     Active Substance: LEVOTHYROXINE
  6. AMBRISENTAN [Suspect]
     Active Substance: AMBRISENTAN
     Indication: EISENMENGER^S SYNDROME

REACTIONS (3)
  - Acute kidney injury [Unknown]
  - Fluid retention [Not Recovered/Not Resolved]
  - Cardiac failure acute [Unknown]
